FAERS Safety Report 20884252 (Version 1)
Quarter: 2022Q2

REPORT INFORMATION
  Report Type: Spontaneous
  Country: US (occurrence: None)
  Receive Date: 20220527
  Receipt Date: 20220527
  Transmission Date: 20220721
  Serious: No
  Sender: FDA-Public Use
  Company Number: None

PATIENT
  Age: 39 Year

DRUGS (1)
  1. LO LOESTRIN FE [Suspect]
     Active Substance: ETHINYL ESTRADIOL\NORETHINDRONE ACETATE
     Dosage: FREQUENCY : DAILY;?
     Route: 048

REACTIONS (5)
  - Arthralgia [None]
  - Asthenia [None]
  - Joint dislocation [None]
  - Emotional disorder [None]
  - Affective disorder [None]
